FAERS Safety Report 7678917-4 (Version None)
Quarter: 2011Q3

REPORT INFORMATION
  Report Type: 
  Country: None (occurrence: None)
  Receive Date: 20110812
  Receipt Date: 20110803
  Transmission Date: 20111222
  Serious: Yes (Other)
  Sender: FDA-Public Use
  Company Number: US-BIOGENIDEC-2011BI029597

PATIENT
  Age: 48 Year
  Sex: Female

DRUGS (1)
  1. AVONEX [Suspect]
     Indication: MULTIPLE SCLEROSIS
     Route: 030
     Dates: start: 20110617

REACTIONS (7)
  - PAIN [None]
  - PYREXIA [None]
  - FAECES DISCOLOURED [None]
  - VOMITING [None]
  - BLADDER NECK SUSPENSION [None]
  - GENERAL SYMPTOM [None]
  - CHILLS [None]
